FAERS Safety Report 23422567 (Version 1)
Quarter: 2024Q1

REPORT INFORMATION
  Report Type: Spontaneous
  Country: US (occurrence: US)
  Receive Date: 20240119
  Receipt Date: 20240119
  Transmission Date: 20240409
  Serious: No
  Sender: FDA-Public Use
  Company Number: US-MYLANLABS-2024M1000894

PATIENT
  Sex: Male

DRUGS (2)
  1. CLONIDINE TRANSDERMAL SYSTEM [Suspect]
     Active Substance: CLONIDINE
     Indication: Blood pressure abnormal
     Dosage: 0.1 MILLIGRAM, QD
     Route: 062
  2. LOSARTAN [Concomitant]
     Active Substance: LOSARTAN
     Indication: Hypertension
     Dosage: 50 MILLIGRAM
     Route: 065

REACTIONS (3)
  - Product dose omission issue [Unknown]
  - Wrong technique in device usage process [Unknown]
  - Product packaging issue [Unknown]
